FAERS Safety Report 25216389 (Version 1)
Quarter: 2025Q2

REPORT INFORMATION
  Report Type: Report from Study
  Country: ES (occurrence: ES)
  Receive Date: 20250418
  Receipt Date: 20250418
  Transmission Date: 20250716
  Serious: Yes (Hospitalization, Other)
  Sender: ROCHE
  Company Number: ES-ROCHE-10000253918

PATIENT

DRUGS (9)
  1. RITUXIMAB [Suspect]
     Active Substance: RITUXIMAB
     Indication: Chronic lymphocytic leukaemia
     Route: 065
  2. OBINUTUZUMAB [Suspect]
     Active Substance: OBINUTUZUMAB
     Indication: Chronic lymphocytic leukaemia
     Route: 065
  3. IBRUTINIB [Suspect]
     Active Substance: IBRUTINIB
     Indication: Chronic lymphocytic leukaemia
     Route: 065
  4. BENDAMUSTINE [Suspect]
     Active Substance: BENDAMUSTINE
     Indication: Chronic lymphocytic leukaemia
     Route: 065
  5. CHLORAMBUCIL [Suspect]
     Active Substance: CHLORAMBUCIL
     Indication: Chronic lymphocytic leukaemia
     Route: 065
  6. IDELALISIB [Suspect]
     Active Substance: IDELALISIB
     Indication: Chronic lymphocytic leukaemia
     Route: 065
  7. FLUDARABINE [Suspect]
     Active Substance: FLUDARABINE PHOSPHATE
     Indication: Chronic lymphocytic leukaemia
     Route: 065
  8. CYCLOPHOSPHAMIDE [Suspect]
     Active Substance: CYCLOPHOSPHAMIDE
     Indication: Chronic lymphocytic leukaemia
     Route: 065
  9. VENETOCLAX [Suspect]
     Active Substance: VENETOCLAX
     Indication: Chronic lymphocytic leukaemia
     Route: 065

REACTIONS (55)
  - Arrhythmia [Unknown]
  - Atrial fibrillation [Unknown]
  - Atrial flutter [Unknown]
  - Hypertension [Unknown]
  - Haemorrhage [Unknown]
  - Richter^s syndrome [Unknown]
  - Hodgkin^s disease [Unknown]
  - Non-Hodgkin^s lymphoma [Unknown]
  - B-cell lymphoma [Unknown]
  - Marginal zone lymphoma [Unknown]
  - Follicular lymphoma [Unknown]
  - B-cell lymphoma [Unknown]
  - Lung neoplasm malignant [Unknown]
  - Prostate cancer [Unknown]
  - Colon cancer [Unknown]
  - Pancreatic carcinoma [Unknown]
  - Bile duct cancer [Unknown]
  - Skin cancer [Unknown]
  - Malignant melanoma [Unknown]
  - Anaemia [Unknown]
  - Thrombocytopenia [Unknown]
  - Neutropenia [Unknown]
  - Febrile neutropenia [Unknown]
  - Pneumonitis [Unknown]
  - Pneumonia [Unknown]
  - Urinary tract infection [Unknown]
  - Cellulitis [Unknown]
  - Bacteraemia [Unknown]
  - Hepatitis B [Unknown]
  - Cytomegalovirus infection [Unknown]
  - Herpes zoster [Unknown]
  - Meningitis [Unknown]
  - Septic shock [Unknown]
  - Pneumocystis jirovecii infection [Unknown]
  - Progressive multifocal leukoencephalopathy [Unknown]
  - Diarrhoea [Unknown]
  - Vomiting [Unknown]
  - Nausea [Unknown]
  - Constipation [Unknown]
  - Headache [Unknown]
  - Cerebrovascular accident [Unknown]
  - Transient ischaemic attack [Unknown]
  - Rash [Unknown]
  - Alopecia [Unknown]
  - Arthralgia [Unknown]
  - Muscle spasms [Unknown]
  - Myalgia [Unknown]
  - Tumour lysis syndrome [Unknown]
  - Asthenia [Unknown]
  - Decreased appetite [Unknown]
  - Pyrexia [Unknown]
  - Hypersensitivity [Unknown]
  - Anaphylactic reaction [Unknown]
  - Oedema peripheral [Unknown]
  - Infusion related reaction [Unknown]
